FAERS Safety Report 7332928-7 (Version None)
Quarter: 2011Q1

REPORT INFORMATION
  Report Type: 
  Country: None (occurrence: None)
  Receive Date: 20110304
  Receipt Date: 20110221
  Transmission Date: 20110831
  Serious: Yes (Hospitalization)
  Sender: FDA-Public Use
  Company Number: PHHY2011PL14187

PATIENT
  Sex: Female
  Weight: 80 kg

DRUGS (4)
  1. KETONAL FORTE [Suspect]
     Indication: BACK PAIN
     Dosage: 300 MG, UNK
     Route: 048
     Dates: start: 20110111, end: 20110111
  2. MYDOCALM [Concomitant]
  3. KETONAL [Concomitant]
  4. VITAMIN B1 TAB [Concomitant]

REACTIONS (5)
  - DYSPNOEA [None]
  - CHEST PAIN [None]
  - PRURITUS [None]
  - URTICARIA [None]
  - DIPLOPIA [None]
